FAERS Safety Report 19912875 (Version 3)
Quarter: 2025Q3

REPORT INFORMATION
  Report Type: Spontaneous
  Country: EU (occurrence: EU)
  Receive Date: 20211004
  Receipt Date: 20250716
  Transmission Date: 20251020
  Serious: Yes (Other)
  Sender: MYLAN
  Company Number: EU-ATNAHS LIMITED-ATNAHS20210501806

PATIENT
  Age: 56 Year
  Sex: Female

DRUGS (4)
  1. KETOROLAC [Suspect]
     Active Substance: KETOROLAC TROMETHAMINE
     Indication: Back pain
  2. KETOROLAC [Suspect]
     Active Substance: KETOROLAC TROMETHAMINE
     Route: 030
  3. KETOROLAC [Suspect]
     Active Substance: KETOROLAC TROMETHAMINE
     Route: 030
  4. KETOROLAC [Suspect]
     Active Substance: KETOROLAC TROMETHAMINE

REACTIONS (5)
  - Peroneal nerve injury [Unknown]
  - Neurotoxicity [Unknown]
  - Injection site nerve damage [Unknown]
  - Hypoaesthesia [Unknown]
  - Off label use [Unknown]
